FAERS Safety Report 11797145 (Version 2)
Quarter: 2016Q1

REPORT INFORMATION
  Report Type: Spontaneous
  Country: US (occurrence: US)
  Receive Date: 20151203
  Receipt Date: 20160112
  Transmission Date: 20160525
  Serious: No
  Sender: FDA-Public Use
  Company Number: US-GLAXOSMITHKLINE-US2015170605

PATIENT
  Sex: Male

DRUGS (1)
  1. FLOVENT [Suspect]
     Active Substance: FLUTICASONE PROPIONATE
     Indication: PRODUCT USED FOR UNKNOWN INDICATION
     Dosage: UNK

REACTIONS (3)
  - Product quality issue [Unknown]
  - Medication error [Unknown]
  - Device use error [Unknown]
